FAERS Safety Report 16782808 (Version 1)
Quarter: 2019Q3

REPORT INFORMATION
  Report Type: Spontaneous
  Country: CA (occurrence: CA)
  Receive Date: 20190906
  Receipt Date: 20190906
  Transmission Date: 20191005
  Serious: Yes (Hospitalization)
  Sender: FDA-Public Use
  Company Number: CA-ACTELION-A-NJ2019-195083

PATIENT
  Age: 43 Year
  Sex: Female

DRUGS (18)
  1. UREA C [Concomitant]
  2. JANUMET [Concomitant]
     Active Substance: METFORMIN HYDROCHLORIDE\SITAGLIPTIN PHOSPHATE
  3. ZUCLOPENTHIXOL [Concomitant]
     Active Substance: ZUCLOPENTHIXOL
  4. PANTOPRAZOLE [Concomitant]
     Active Substance: PANTOPRAZOLE
  5. VENTOLIN [Concomitant]
     Active Substance: ALBUTEROL SULFATE
  6. MAALOX ANTACID [Concomitant]
     Active Substance: ALUMINUM HYDROXIDE\DIMETHICONE\MAGNESIUM HYDROXIDE
  7. OLANZAPINE. [Concomitant]
     Active Substance: OLANZAPINE
  8. SPIRONOLACTONE ALTIZIDE TEVA [Concomitant]
  9. LACTULOSE. [Concomitant]
     Active Substance: LACTULOSE
  10. OPSUMIT [Suspect]
     Active Substance: MACITENTAN
     Indication: PULMONARY ARTERIAL HYPERTENSION
     Dosage: 10 MG
     Route: 048
     Dates: start: 20190724
  11. DOCUSATE [Concomitant]
     Active Substance: DOCUSATE
  12. MULTIVITAMIN [Concomitant]
     Active Substance: VITAMINS
  13. BENZTROPINE. [Concomitant]
     Active Substance: BENZTROPINE
  14. LITHIUM. [Concomitant]
     Active Substance: LITHIUM
  15. FUROSEMIDE. [Concomitant]
     Active Substance: FUROSEMIDE
  16. METOLAZONE. [Concomitant]
     Active Substance: METOLAZONE
  17. ROSUVASTATIN. [Concomitant]
     Active Substance: ROSUVASTATIN
  18. TOPIRAMATE. [Concomitant]
     Active Substance: TOPIRAMATE

REACTIONS (2)
  - Hospitalisation [Not Recovered/Not Resolved]
  - Product dose omission [Not Recovered/Not Resolved]

NARRATIVE: CASE EVENT DATE: 20190825
